FAERS Safety Report 7774183-X (Version None)
Quarter: 2011Q3

REPORT INFORMATION
  Report Type: 
  Country: None (occurrence: None)
  Receive Date: 20110923
  Receipt Date: 20110916
  Transmission Date: 20111222
  Serious: Yes (Hospitalization)
  Sender: FDA-Public Use
  Company Number: US-UCBSA-041456

PATIENT
  Sex: Female
  Weight: 78.64 kg

DRUGS (9)
  1. NORVASC [Concomitant]
     Indication: CARDIAC DISORDER
     Route: 048
     Dates: start: 20050101
  2. SYNTHROID [Concomitant]
     Indication: SUPPLEMENTATION THERAPY
     Route: 048
     Dates: start: 20050101
  3. RELAFEN [Concomitant]
     Indication: ARTHRITIS
     Dosage: 1-2 A DAY
     Route: 048
  4. ALTACE [Concomitant]
     Indication: CARDIAC DISORDER
     Route: 048
  5. ESTRACE [Concomitant]
     Indication: SUPPLEMENTATION THERAPY
     Route: 048
     Dates: start: 19880101
  6. RESTASIS [Concomitant]
     Indication: DRY EYE
     Dosage: ONE DROP IN EACH EYE IS 0.4 ML
     Route: 047
     Dates: start: 20100101
  7. CIMZIA [Suspect]
     Indication: RHEUMATOID ARTHRITIS
     Route: 058
     Dates: start: 20101101
  8. PANTOPRAZOLE [Concomitant]
     Indication: SUPPLEMENTATION THERAPY
     Route: 048
     Dates: start: 20110901
  9. DYRENIUM [Concomitant]
     Indication: CARDIAC DISORDER
     Dosage: MONDAY, WEDNESDAY,FRIDAY
     Route: 048
     Dates: start: 20060101

REACTIONS (1)
  - THYROID CANCER [None]
